FAERS Safety Report 15393225 (Version 2)
Quarter: 2019Q1

REPORT INFORMATION
  Report Type: Spontaneous
  Country: NL (occurrence: NL)
  Receive Date: 20180917
  Receipt Date: 20190214
  Transmission Date: 20190417
  Serious: Yes (Hospitalization)
  Sender: FDA-Public Use
  Company Number: NL-MYLANLABS-2018M1067966

PATIENT
  Sex: Female

DRUGS (1)
  1. REMIFENTANIL [Suspect]
     Active Substance: REMIFENTANIL
     Indication: EPIDURAL ANALGESIA
     Dosage: UNK
     Route: 042

REACTIONS (4)
  - Sedation [Unknown]
  - Maternal exposure during delivery [Recovered/Resolved]
  - Respiratory depression [Unknown]
  - Oxygen saturation decreased [Unknown]
